FAERS Safety Report 13869001 (Version 4)
Quarter: 2022Q4

REPORT INFORMATION
  Report Type: Report from Study
  Country: US (occurrence: US)
  Receive Date: 20170815
  Receipt Date: 20221004
  Transmission Date: 20230113
  Serious: Yes (Hospitalization, Other)
  Sender: FDA-Public Use
  Company Number: US-TAKEDA-2017TUS016678

PATIENT
  Age: 30 Year
  Sex: Female
  Weight: 63.5 kg

DRUGS (15)
  1. VEDOLIZUMAB [Suspect]
     Active Substance: VEDOLIZUMAB
     Indication: Crohn^s disease
     Dosage: 300 MILLIGRAM
     Route: 065
     Dates: start: 20140801, end: 20171230
  2. BENADRYL                           /00000402/ [Concomitant]
     Indication: Sleep disorder
     Dosage: 50 MG, QD
     Route: 048
     Dates: start: 20170510
  3. BENADRYL                           /00000402/ [Concomitant]
     Indication: Hypersensitivity
  4. FOLIC ACID [Concomitant]
     Active Substance: FOLIC ACID
     Dosage: 1 MG, QD
     Route: 048
     Dates: start: 20170510, end: 20170901
  5. SINGULAIR [Concomitant]
     Active Substance: MONTELUKAST SODIUM
     Indication: Asthma
     Dosage: 10 MG, QD
     Route: 048
     Dates: start: 20170510, end: 20171230
  6. ZOLOFT [Concomitant]
     Active Substance: SERTRALINE HYDROCHLORIDE
     Indication: Depression
     Dosage: 100 MG, QD
     Route: 048
     Dates: start: 20170510
  7. PREDNISONE [Concomitant]
     Active Substance: PREDNISONE
     Indication: Crohn^s disease
     Dosage: 15 MG, QD
     Route: 048
     Dates: start: 20171001
  8. DIETARY SUPPLEMENT [Concomitant]
     Active Substance: DIETARY SUPPLEMENT
     Dosage: UNK UNK, QD
     Route: 048
     Dates: start: 20170901, end: 20171230
  9. DITROPAN [Concomitant]
     Active Substance: OXYBUTYNIN CHLORIDE
     Indication: Nephrolithiasis
     Dosage: 10 MILLIGRAM
     Route: 048
     Dates: start: 20170916, end: 20171230
  10. LABETALOL [Concomitant]
     Active Substance: LABETALOL\LABETALOL HYDROCHLORIDE
     Indication: Hypertension
     Dosage: 100 MILLIGRAM, BID
     Route: 048
     Dates: start: 20170916, end: 20171230
  11. VANCOMYCIN [Concomitant]
     Active Substance: VANCOMYCIN
     Indication: Nephrolithiasis
     Dosage: UNK UNK, QD
     Route: 042
     Dates: start: 20171006, end: 20171008
  12. INVANZ [Concomitant]
     Active Substance: ERTAPENEM SODIUM
     Indication: Kidney infection
     Dosage: 1 GRAM, QD
     Route: 058
     Dates: start: 20171031, end: 20171230
  13. MACROBID [Concomitant]
     Active Substance: NITROFURANTOIN\NITROFURANTOIN MONOHYDRATE
     Indication: Kidney infection
     Dosage: 100 MILLIGRAM, QD
     Route: 048
     Dates: start: 20170701, end: 20171230
  14. ZOFRAN [Concomitant]
     Active Substance: ONDANSETRON HYDROCHLORIDE
     Indication: Nausea
     Dosage: UNK
     Dates: start: 20170627, end: 20170628
  15. ZOFRAN [Concomitant]
     Active Substance: ONDANSETRON HYDROCHLORIDE
     Indication: Vomiting

REACTIONS (3)
  - Kidney infection [Unknown]
  - Nephrolithiasis [Recovered/Resolved]
  - Pregnancy [Recovered/Resolved]

NARRATIVE: CASE EVENT DATE: 20170510
